FAERS Safety Report 19143286 (Version 3)
Quarter: 2022Q4

REPORT INFORMATION
  Report Type: Report from Study
  Country: US (occurrence: US)
  Receive Date: 20210416
  Receipt Date: 20221124
  Transmission Date: 20230113
  Serious: Yes (Hospitalization, Other)
  Sender: FDA-Public Use
  Company Number: US-ACADIA PHARMACEUTICALS INC.-ACA-2021-PIM-001121

PATIENT
  Age: 72 Year
  Sex: Female

DRUGS (14)
  1. NUPLAZID [Suspect]
     Active Substance: PIMAVANSERIN TARTRATE
     Indication: Parkinson^s disease psychosis
     Dosage: 34 MILLIGRAM, QD
     Route: 048
     Dates: start: 20201130
  2. NUPLAZID [Suspect]
     Active Substance: PIMAVANSERIN TARTRATE
     Dosage: 34 MILLIGRAM, QD
     Route: 048
     Dates: start: 20210517
  3. ANASTROZOLE [Concomitant]
     Active Substance: ANASTROZOLE
  4. RIVASTIGMINE [Concomitant]
     Active Substance: RIVASTIGMINE
  5. SYNTHROID [Concomitant]
     Active Substance: LEVOTHYROXINE SODIUM
  6. ATORVASTATIN [Concomitant]
     Active Substance: ATORVASTATIN
  7. CARVEDILOL [Concomitant]
     Active Substance: CARVEDILOL
  8. CLONAZEPAM [Concomitant]
     Active Substance: CLONAZEPAM
  9. OLMESARTAN [Concomitant]
     Active Substance: OLMESARTAN
  10. SOLIFENACIN [Concomitant]
     Active Substance: SOLIFENACIN
  11. CHOLECALCIFEROL [Concomitant]
     Active Substance: CHOLECALCIFEROL
  12. RISPERIDONE [Concomitant]
     Active Substance: RISPERIDONE
  13. QUETIAPINE [Concomitant]
     Active Substance: QUETIAPINE
  14. COREG [Concomitant]
     Active Substance: CARVEDILOL

REACTIONS (3)
  - Pneumonia [Recovered/Resolved]
  - Oedema peripheral [Recovered/Resolved]
  - Oedema peripheral [Recovering/Resolving]

NARRATIVE: CASE EVENT DATE: 20210309
